FAERS Safety Report 9419903 (Version 1)
Quarter: 2013Q3

REPORT INFORMATION
  Report Type: Spontaneous
  Country: US (occurrence: None)
  Receive Date: 20130723
  Receipt Date: 20130723
  Transmission Date: 20140515
  Serious: Yes (Other)
  Sender: FDA-Public Use
  Company Number: None

PATIENT
  Age: 8 Year
  Sex: Male
  Weight: 29.48 kg

DRUGS (3)
  1. ZOLOFT [Suspect]
     Route: 048
     Dates: start: 20130710, end: 20130720
  2. ZOLOFT [Suspect]
     Indication: ATTENTION DEFICIT/HYPERACTIVITY DISORDER
     Route: 048
     Dates: start: 20130710, end: 20130720
  3. ZOLOFT [Suspect]
     Route: 048
     Dates: start: 20130710, end: 20130720

REACTIONS (1)
  - Epistaxis [None]
